FAERS Safety Report 8671795 (Version 2)
Quarter: 2013Q4

REPORT INFORMATION
  Report Type: Spontaneous
  Country: US (occurrence: US)
  Receive Date: 20120718
  Receipt Date: 20131031
  Transmission Date: 20140711
  Serious: Yes (Other)
  Sender: FDA-Public Use
  Company Number: US-009507513-1207USA004521

PATIENT
  Age: 64 Year
  Sex: Female
  Weight: 70.3 kg

DRUGS (1)
  1. CLARITIN-D [Suspect]
     Indication: ALLERGIC SINUSITIS
     Dosage: UNK, Q12H
     Route: 048
     Dates: start: 20120629, end: 20120702

REACTIONS (3)
  - Blindness transient [Recovering/Resolving]
  - Vision blurred [Recovering/Resolving]
  - Diplopia [Recovering/Resolving]
